FAERS Safety Report 9050611 (Version 2)
Quarter: 2013Q2

REPORT INFORMATION
  Report Type: Spontaneous
  Country: US (occurrence: US)
  Receive Date: 20130205
  Receipt Date: 20130422
  Transmission Date: 20140414
  Serious: Yes (Other)
  Sender: FDA-Public Use
  Company Number: US-NOVOPROD-369967

PATIENT
  Age: 5 Year
  Sex: Female

DRUGS (3)
  1. NORDITROPIN FLEXPRO 10 MG/ML [Suspect]
     Indication: GROWTH HORMONE DEFICIENCY
     Dosage: 0.55 MG QD
     Route: 058
     Dates: start: 20130126
  2. KEPPRA [Concomitant]
     Indication: CONVULSION
     Dosage: 3 ML BID
     Route: 048
  3. DIVALPROEX SODIUM [Concomitant]
     Indication: CONVULSION
     Dosage: 125 MG QD
     Route: 048

REACTIONS (4)
  - Convulsion [Recovered/Resolved]
  - Vomiting [Recovered/Resolved]
  - Tremor [Recovered/Resolved]
  - Muscle twitching [Recovered/Resolved]
